FAERS Safety Report 6554658-1 (Version None)
Quarter: 2010Q1

REPORT INFORMATION
  Report Type: 
  Country: None (occurrence: None)
  Receive Date: 20100127
  Receipt Date: 20100119
  Transmission Date: 20100710
  Serious: Yes (Hospitalization)
  Sender: FDA-Public Use
  Company Number: US-JNJCH-2010002449

PATIENT
  Age: 49 Year
  Sex: Female

DRUGS (1)
  1. DIPHENHYDRAMINE [Suspect]
     Indication: DRUG USE FOR UNKNOWN INDICATION
     Dosage: TEXT:10 GRAMS
     Route: 048

REACTIONS (4)
  - MENTAL STATUS CHANGES [None]
  - OVERDOSE [None]
  - PNEUMONIA ASPIRATION [None]
  - TORSADE DE POINTES [None]
